FAERS Safety Report 7764874-9 (Version None)
Quarter: 2011Q3

REPORT INFORMATION
  Report Type: 
  Country: None (occurrence: None)
  Receive Date: 20110921
  Receipt Date: 20110908
  Transmission Date: 20111222
  Serious: No
  Sender: FDA-Public Use
  Company Number: US-JNJFOC-20110905235

PATIENT
  Sex: Male
  Weight: 111.59 kg

DRUGS (4)
  1. DURAGESIC-100 [Suspect]
     Route: 062
     Dates: start: 20110101, end: 20110101
  2. DURAGESIC-100 [Suspect]
     Indication: NERVE INJURY
     Route: 062
     Dates: start: 20080101, end: 20110101
  3. DURAGESIC-100 [Suspect]
     Route: 062
     Dates: start: 20110101
  4. PERCOCET [Concomitant]
     Indication: BREAKTHROUGH PAIN
     Dosage: 10/650 MG
     Route: 048
     Dates: start: 20080101

REACTIONS (6)
  - DRUG EFFECT INCREASED [None]
  - MUSCLE SPASMS [None]
  - NEURALGIA [None]
  - SENSORY DISTURBANCE [None]
  - PRODUCT QUALITY ISSUE [None]
  - INAPPROPRIATE SCHEDULE OF DRUG ADMINISTRATION [None]
